FAERS Safety Report 14326065 (Version 1)
Quarter: 2017Q4

REPORT INFORMATION
  Report Type: Spontaneous
  Country: IT (occurrence: IT)
  Receive Date: 20171226
  Receipt Date: 20171226
  Transmission Date: 20180321
  Serious: Yes (Other)
  Sender: FDA-Public Use
  Company Number: IT-BAUSCH-BL-2017-035864

PATIENT
  Age: 5 Year
  Sex: Male

DRUGS (3)
  1. METHYLPREDNISOLONE. [Suspect]
     Active Substance: METHYLPREDNISOLONE
     Indication: INFLAMMATORY BOWEL DISEASE
     Dosage: FEW MONTH (S)
     Route: 065
  2. METHYLPREDNISOLONE. [Suspect]
     Active Substance: METHYLPREDNISOLONE
     Route: 065
  3. METRONIDAZOLE. [Suspect]
     Active Substance: METRONIDAZOLE
     Indication: INFLAMMATORY BOWEL DISEASE
     Route: 065

REACTIONS (3)
  - Off label use [Unknown]
  - Inflammatory bowel disease [Unknown]
  - Cushing^s syndrome [Unknown]
